FAERS Safety Report 6825892-8 (Version None)
Quarter: 2010Q3

REPORT INFORMATION
  Report Type: 
  Country: None (occurrence: None)
  Receive Date: 20100707
  Receipt Date: 20100707
  Transmission Date: 20110219
  Serious: Yes (Life-Threatening, Disabling, Other)
  Sender: FDA-Public Use
  Company Number: None

PATIENT
  Sex: Female
  Weight: 72.5755 kg

DRUGS (6)
  1. IBUPROFEN [Suspect]
     Indication: ARTHRALGIA
     Dosage: 1 TAB 6 HRS 600 MG 6 HRS
     Dates: start: 19940101, end: 20100101
  2. ISOSOBRIDE 25 MG TABLET ALLEGY [Suspect]
     Indication: CARDIAC DISORDER
     Dosage: 1 TAB 6 HRS
     Dates: start: 20090601, end: 20091101
  3. MIRENA [Suspect]
  4. VIOKASE [Concomitant]
  5. ARAO [Concomitant]
  6. INHALER [Concomitant]

REACTIONS (4)
  - BLOOD PRESSURE ABNORMAL [None]
  - CARDIAC DISORDER [None]
  - OVERDOSE [None]
  - RENAL CYST [None]
